FAERS Safety Report 16079467 (Version 3)
Quarter: 2019Q2

REPORT INFORMATION
  Report Type: Spontaneous
  Country: RU (occurrence: RU)
  Receive Date: 20190315
  Receipt Date: 20190508
  Transmission Date: 20190711
  Serious: Yes (Hospitalization, Other)
  Sender: FDA-Public Use
  Company Number: RU-ASTRAZENECA-2019SE40195

PATIENT
  Sex: Female
  Weight: 90 kg

DRUGS (3)
  1. JANOVIA [Concomitant]
  2. BRILINTA [Suspect]
     Active Substance: TICAGRELOR
     Dosage: 90.0MG UNKNOWN
     Route: 048
  3. ZOCARDIS [Concomitant]

REACTIONS (6)
  - Chest pain [Unknown]
  - Contusion [Unknown]
  - Suspected counterfeit product [Unknown]
  - Acute coronary syndrome [Unknown]
  - Petechiae [Unknown]
  - Drug ineffective [Unknown]
